FAERS Safety Report 6491382-8 (Version None)
Quarter: 2009Q4

REPORT INFORMATION
  Report Type: 
  Country: None (occurrence: None)
  Receive Date: 20091211
  Receipt Date: 20091211
  Transmission Date: 20100525
  Serious: Yes (Hospitalization)
  Sender: FDA-Public Use
  Company Number: JP-B.I. PHARMACEUTICALS,INC./RIDGEFIELD-2009-BP-09776NB

PATIENT
  Sex: Female
  Weight: 67.6 kg

DRUGS (4)
  1. MICARDIS [Suspect]
     Indication: HYPERTENSION
     Dosage: 20 MG
     Route: 048
     Dates: start: 20060930, end: 20080202
  2. MICARDIS [Suspect]
     Dosage: 40 MG
     Route: 048
     Dates: start: 20070609, end: 20080202
  3. MOBIC [Suspect]
     Indication: BACK PAIN
     Dosage: 5 MG
     Route: 048
     Dates: start: 20060317
  4. WARFARIN SODIUM [Suspect]
     Indication: DEEP VEIN THROMBOSIS
     Dosage: 1.75 MG
     Route: 048
     Dates: start: 19970201, end: 20080202

REACTIONS (2)
  - GASTRIC ULCER HAEMORRHAGE [None]
  - HUMERUS FRACTURE [None]
